FAERS Safety Report 17628947 (Version 3)
Quarter: 2020Q2

REPORT INFORMATION
  Report Type: Spontaneous
  Country: US (occurrence: US)
  Receive Date: 20200406
  Receipt Date: 20200618
  Transmission Date: 20200713
  Serious: No
  Sender: FDA-Public Use
  Company Number: US-KARYOPHARM-2020KPT000139

PATIENT

DRUGS (1)
  1. XPOVIO [Suspect]
     Active Substance: SELINEXOR
     Indication: PRODUCT USED FOR UNKNOWN INDICATION
     Dosage: 80 MG, 2X/WEEK
     Route: 048
     Dates: start: 20190924, end: 202002

REACTIONS (6)
  - Sinusitis [Recovered/Resolved]
  - Cough [Recovered/Resolved]
  - Plasma cell myeloma recurrent [Unknown]
  - Upper respiratory tract infection [Unknown]
  - Full blood count decreased [Recovering/Resolving]
  - Product dose omission [Unknown]

NARRATIVE: CASE EVENT DATE: 202002
